FAERS Safety Report 10096669 (Version 1)
Quarter: 2014Q2

REPORT INFORMATION
  Report Type: Spontaneous
  Country: US (occurrence: None)
  Receive Date: 20140421
  Receipt Date: 20140421
  Transmission Date: 20141212
  Serious: No
  Sender: FDA-Public Use
  Company Number: None

PATIENT
  Sex: Female
  Weight: 62.14 kg

DRUGS (1)
  1. SERTRALINE [Suspect]
     Indication: GENERALISED ANXIETY DISORDER
     Route: 048
     Dates: start: 20120730, end: 201312

REACTIONS (6)
  - Depressed mood [None]
  - Anxiety [None]
  - Headache [None]
  - Paraesthesia [None]
  - Drug intolerance [None]
  - Product substitution issue [None]
